FAERS Safety Report 7226738-9 (Version None)
Quarter: 2011Q1

REPORT INFORMATION
  Report Type: 
  Country: None (occurrence: None)
  Receive Date: 20110105
  Receipt Date: 20101224
  Transmission Date: 20110831
  Serious: Yes (Death, Disabling)
  Sender: FDA-Public Use
  Company Number: 012522

PATIENT
  Age: 15 Year
  Sex: Male

DRUGS (4)
  1. MELPHALAN HYDROCHLORIDE [Concomitant]
  2. BUSULFEX [Suspect]
  3. TACROLIMUS [Concomitant]
  4. METHOTREXATE [Concomitant]

REACTIONS (2)
  - CONVULSION [None]
  - INAPPROPRIATE ANTIDIURETIC HORMONE SECRETION [None]
